FAERS Safety Report 5943606-0 (Version None)
Quarter: 2008Q4

REPORT INFORMATION
  Report Type: 
  Country: None (occurrence: None)
  Receive Date: 20081106
  Receipt Date: 20081027
  Transmission Date: 20090506
  Serious: Yes (Other)
  Sender: FDA-Public Use
  Company Number: BR-WYE-H06604908

PATIENT
  Age: 50 Year
  Sex: Male

DRUGS (4)
  1. EFFEXOR XR [Suspect]
     Indication: BIPOLAR DISORDER
     Route: 048
  2. EFFEXOR XR [Suspect]
     Indication: DEPRESSION
  3. MIDAZOLAM HCL [Concomitant]
     Dosage: UNKNOWN
  4. CARBAMAZEPINE [Concomitant]
     Dosage: UNKNOWN

REACTIONS (3)
  - BLOOD PRESSURE INCREASED [None]
  - INTRACRANIAL PRESSURE INCREASED [None]
  - NEUROLOGICAL SYMPTOM [None]
